FAERS Safety Report 24436342 (Version 1)
Quarter: 2024Q4

REPORT INFORMATION
  Report Type: Other
  Country: BE (occurrence: BE)
  Receive Date: 20241015
  Receipt Date: 20241015
  Transmission Date: 20250115
  Serious: Yes (Other)
  Sender: DEXCEL
  Company Number: BE-DEXPHARM-2024-3944

PATIENT
  Age: 27 Year
  Sex: Male

DRUGS (3)
  1. VENLAFAXINE HYDROCHLORIDE [Suspect]
     Active Substance: VENLAFAXINE HYDROCHLORIDE
     Indication: Depressive symptom
     Dosage: 75MG IN THE MORNING
  2. ATOMOXETINE HYDROCHLORIDE [Suspect]
     Active Substance: ATOMOXETINE HYDROCHLORIDE
     Indication: Attention deficit hyperactivity disorder
     Dosage: 60MG IN THE MORNING
  3. BILASTINE [Suspect]
     Active Substance: BILASTINE
     Dosage: 20MG IN THE MORNING

REACTIONS (1)
  - Reversible cerebral vasoconstriction syndrome [Recovered/Resolved]
